FAERS Safety Report 6313356-X (Version None)
Quarter: 2009Q3

REPORT INFORMATION
  Report Type: 
  Country: None (occurrence: None)
  Receive Date: 20090818
  Receipt Date: 20090813
  Transmission Date: 20100115
  Serious: Yes (Death, Hospitalization)
  Sender: FDA-Public Use
  Company Number: BR-ABBOTT-09P-020-0591192-00

PATIENT
  Age: 24 Year
  Sex: Male

DRUGS (7)
  1. KLARICID [Suspect]
     Indication: DRUG USE FOR UNKNOWN INDICATION
  2. OSELTAMIVIR [Suspect]
     Indication: DRUG USE FOR UNKNOWN INDICATION
  3. IMIPENEM [Suspect]
     Indication: DRUG USE FOR UNKNOWN INDICATION
  4. TAZOCIN [Suspect]
     Indication: DRUG USE FOR UNKNOWN INDICATION
  5. ROCEPHIN [Suspect]
     Indication: DRUG USE FOR UNKNOWN INDICATION
  6. CORTICOSTEROID NOS [Suspect]
     Indication: DRUG USE FOR UNKNOWN INDICATION
  7. IMMUNE GLOBULIN INTRAVENOUS (HUMAN) [Suspect]
     Indication: DRUG USE FOR UNKNOWN INDICATION

REACTIONS (4)
  - DRUG INEFFECTIVE [None]
  - PNEUMONIA [None]
  - PULMONARY ALVEOLAR HAEMORRHAGE [None]
  - RESPIRATORY FAILURE [None]
